FAERS Safety Report 15408333 (Version 1)
Quarter: 2018Q3

REPORT INFORMATION
  Report Type: Spontaneous
  Country: DE (occurrence: DE)
  Receive Date: 20180920
  Receipt Date: 20180920
  Transmission Date: 20181010
  Serious: Yes (Congenital Anomaly)
  Sender: FDA-Public Use
  Company Number: DE-SA-2018SA254451

PATIENT
  Age: 1 Day
  Sex: Male
  Weight: 4.03 kg

DRUGS (9)
  1. LEMTRADA [Concomitant]
     Active Substance: ALEMTUZUMAB
     Indication: MULTIPLE SCLEROSIS
     Route: 064
  2. AMITRIPTYLINE HYDROCHLORIDE. [Suspect]
     Active Substance: AMITRIPTYLINE HYDROCHLORIDE
     Indication: SLEEP DISORDER
     Dosage: 4.5. ? 6.1. GESTATIONAL WEEK
     Route: 064
     Dates: start: 20170721, end: 20170731
  3. DOXYLAMINE SUCCINATE. [Suspect]
     Active Substance: DOXYLAMINE SUCCINATE
     Indication: SLEEP DISORDER
     Dosage: 6.1. ? 34.4. GESTATIONAL WEEK
     Route: 064
     Dates: start: 20170731, end: 20180215
  4. L?THYROXIN [LEVOTHYROXINE SODIUM] [Concomitant]
     Indication: AUTOIMMUNE THYROIDITIS
     Dosage: 100 [?G/D (BIS 50) ]
     Route: 064
     Dates: start: 20170618, end: 20180315
  5. ZOLPIDEM TARTRATE. [Suspect]
     Active Substance: ZOLPIDEM TARTRATE
     Indication: SLEEP DISORDER
     Dosage: 10 [MG/D (BIS 5) ]
     Route: 064
     Dates: start: 20170616, end: 20170727
  6. TANNOLACT [Concomitant]
     Indication: HERPES ZOSTER
     Route: 064
     Dates: start: 20180110, end: 20180112
  7. FOLIC ACID. [Concomitant]
     Active Substance: FOLIC ACID
     Indication: PROPHYLAXIS OF NEURAL TUBE DEFECT
     Dosage: UNK
     Route: 064
     Dates: start: 20170616, end: 20170731
  8. ZINC CHLORIDE [Concomitant]
     Active Substance: ZINC CHLORIDE
     Indication: HERPES ZOSTER
     Dosage: UNK
     Route: 064
     Dates: start: 20180110, end: 20180112
  9. DRONABINOL. [Concomitant]
     Active Substance: DRONABINOL
     Indication: PAIN
     Dosage: UNK
     Route: 064
     Dates: start: 20170616, end: 20170719

REACTIONS (3)
  - Large for dates baby [Unknown]
  - Foetal exposure during pregnancy [Unknown]
  - Ventricular septal defect [Unknown]

NARRATIVE: CASE EVENT DATE: 20180315
